FAERS Safety Report 25977021 (Version 1)
Quarter: 2025Q4

REPORT INFORMATION
  Report Type: Spontaneous
  Country: EU (occurrence: EU)
  Receive Date: 20251030
  Receipt Date: 20251030
  Transmission Date: 20260117
  Serious: Yes (Other)
  Sender: BOEHRINGER INGELHEIM
  Company Number: EU-BoehringerIngelheim-2025-BI-099611

PATIENT
  Sex: Male
  Weight: 71 kg

DRUGS (13)
  1. OFEV [Suspect]
     Active Substance: NINTEDANIB
     Indication: Pulmonary fibrosis
     Dosage: 150 MG TWICE DAILY
     Dates: start: 202308, end: 202308
  2. OFEV [Suspect]
     Active Substance: NINTEDANIB
     Dosage: 100 MG TWICE DAILY?STOP TREATMENT AFTER 3 MONTHS
  3. PANTOPRAZOLE SODIUM [Concomitant]
     Active Substance: PANTOPRAZOLE SODIUM
     Indication: Product used for unknown indication
  4. SPIRONOLACTONE [Concomitant]
     Active Substance: SPIRONOLACTONE
     Indication: Product used for unknown indication
     Dosage: SPIROBENE (SPIRONOLACTONE) 50 MG ? 1 IN THE MORNING (INCREASED FROM ? IN THE MORNING)
  5. CANDESARTAN CILEXETIL AND HYDROCHLOROTHIAZIDE [Concomitant]
     Active Substance: CANDESARTAN CILEXETIL\HYDROCHLOROTHIAZIDE
     Indication: Product used for unknown indication
     Dosage: 1 IN THE MORNING
  6. CANDESARTAN CILEXETIL [Concomitant]
     Active Substance: CANDESARTAN CILEXETIL
     Indication: Product used for unknown indication
     Dosage: 1 IN THE EVENING
  7. METFORMIN [Concomitant]
     Active Substance: METFORMIN HYDROCHLORIDE
     Indication: Product used for unknown indication
     Dosage: METFORMIN 500 MG ? ? IN THE MORNING AND ? IN THE EVENING (NOT TAKEN ON SOME DAYS)
  8. PHENPROCOUMON [Concomitant]
     Active Substance: PHENPROCOUMON
     Indication: Product used for unknown indication
     Dosage: MARCOUMAR (PHENPROCOUMON) ? DOSAGE NOT SPECIFIED
  9. ATORVASTATIN CALCIUM\EZETIMIBE [Concomitant]
     Active Substance: ATORVASTATIN CALCIUM\EZETIMIBE
     Indication: Product used for unknown indication
     Dosage: EZEATO 10/20 (EZETIMIBE/ATORVASTATIN) ? 1 IN THE EVENING
  10. Oleovit [Concomitant]
     Indication: Product used for unknown indication
     Dosage: 1 X PER WEEK ON SATURDAY
  11. MaxiKalz [Concomitant]
     Indication: Product used for unknown indication
     Dosage: 1 IN THE MORNING
  12. magnesium granules [Concomitant]
     Indication: Product used for unknown indication
     Dosage: 1-0-0
  13. LOPERAMIDE [Concomitant]
     Active Substance: LOPERAMIDE

REACTIONS (4)
  - Pulmonary fibrosis [Unknown]
  - Disease progression [Unknown]
  - Gastrointestinal disorder [Unknown]
  - Diarrhoea [Unknown]
